FAERS Safety Report 13026529 (Version 1)
Quarter: 2016Q4

REPORT INFORMATION
  Report Type: Spontaneous
  Country: US (occurrence: US)
  Receive Date: 20161214
  Receipt Date: 20161214
  Transmission Date: 20170207
  Serious: No
  Sender: FDA-Public Use
  Company Number: US-BAYER-2016-236999

PATIENT
  Age: 12 Year
  Sex: Male

DRUGS (1)
  1. CLARITIN [Suspect]
     Active Substance: LORATADINE
     Dosage: 1 DF, BID
     Route: 048
     Dates: start: 20161213

REACTIONS (1)
  - Incorrect dose administered [None]
